FAERS Safety Report 7620613-3 (Version None)
Quarter: 2011Q3

REPORT INFORMATION
  Report Type: 
  Country: None (occurrence: None)
  Receive Date: 20110719
  Receipt Date: 20110714
  Transmission Date: 20111222
  Serious: Yes (Other)
  Sender: FDA-Public Use
  Company Number: AU-ROCHE-790311

PATIENT

DRUGS (2)
  1. HERCEPTIN [Suspect]
     Route: 065
  2. LAPATINIB [Concomitant]

REACTIONS (1)
  - DISEASE PROGRESSION [None]
